FAERS Safety Report 9777979 (Version 1)
Quarter: 2013Q4

REPORT INFORMATION
  Report Type: Spontaneous
  Country: FR (occurrence: FR)
  Receive Date: 20131223
  Receipt Date: 20131223
  Transmission Date: 20140711
  Serious: Yes (Hospitalization, Other)
  Sender: FDA-Public Use
  Company Number: FR-009507513-1312FRA009435

PATIENT
  Age: 54 Year
  Sex: Male
  Weight: 70 kg

DRUGS (9)
  1. NORSET [Suspect]
     Indication: MAJOR DEPRESSION
     Dosage: 45 MG, QD
     Route: 048
     Dates: end: 201308
  2. SEROQUEL [Suspect]
     Indication: MAJOR DEPRESSION
     Dosage: 1 DF, QD
     Route: 048
     Dates: end: 201308
  3. PERMIXON [Concomitant]
     Indication: PROSTATIC ADENOMA
     Dosage: 1 DF, BID
     Route: 048
  4. XATRAL [Concomitant]
     Indication: PROSTATIC ADENOMA
     Dosage: 1 DF, UNK
     Route: 048
  5. ALTEISDUO [Concomitant]
     Indication: HYPERTENSION
     Dosage: 1 DF, QD
     Route: 048
  6. NUREFLEX [Concomitant]
     Indication: PRODUCT USED FOR UNKNOWN INDICATION
     Dosage: 1 DF, TID
     Route: 048
  7. VOLTAREN EMULGEL [Concomitant]
     Indication: PRODUCT USED FOR UNKNOWN INDICATION
     Route: 003
  8. TEMESTA [Concomitant]
     Indication: ANXIETY
     Dosage: 4 DF, QD
     Route: 048
  9. ATARAX (HYDROXYZINE HYDROCHLORIDE) [Concomitant]
     Indication: ANXIETY
     Dosage: 3 DF, TID
     Route: 048

REACTIONS (1)
  - Neuroleptic malignant syndrome [Recovered/Resolved]
